FAERS Safety Report 8350202-7 (Version None)
Quarter: 2012Q2

REPORT INFORMATION
  Report Type: 
  Country: None (occurrence: None)
  Receive Date: 20120510
  Receipt Date: 20120502
  Transmission Date: 20120825
  Serious: Yes (Life-Threatening)
  Sender: FDA-Public Use
  Company Number: FR-ROCHE-1031655

PATIENT
  Age: 58 Year
  Sex: Male

DRUGS (3)
  1. COPEGUS [Suspect]
     Indication: HEPATITIS C
     Route: 048
     Dates: start: 20111003, end: 20120103
  2. PEGASYS [Suspect]
     Indication: HEPATITIS C
     Route: 058
     Dates: start: 20111003, end: 20120103
  3. INCIVO [Suspect]
     Indication: HEPATITIS C
     Route: 048
     Dates: start: 20111108, end: 20120103

REACTIONS (2)
  - THROMBOCYTOPENIA [None]
  - CONDITION AGGRAVATED [None]
